FAERS Safety Report 5080183-3 (Version None)
Quarter: 2006Q3

REPORT INFORMATION
  Report Type: 
  Country: None (occurrence: None)
  Receive Date: 20060815
  Receipt Date: 20051114
  Transmission Date: 20061208
  Serious: Yes (Death)
  Sender: FDA-Public Use
  Company Number: PHHO2005JP17953

PATIENT
  Age: 79 Year
  Sex: Male

DRUGS (9)
  1. DIOVAN [Suspect]
     Indication: HYPERTENSION
     Dosage: 80 MG, QD
     Route: 048
     Dates: start: 20030527
  2. NORVASC [Concomitant]
     Indication: HYPERTENSION
  3. UNIPHYL [Concomitant]
     Indication: ASTHMA
  4. MUCOSOLVON [Concomitant]
     Indication: BRONCHIECTASIS
  5. FERROMIA [Concomitant]
     Indication: IRON DEFICIENCY
  6. ISOSORBIDE MONONITRATE [Concomitant]
     Indication: ANGINA PECTORIS
  7. GASTER [Concomitant]
     Indication: GASTRIC ULCER
  8. ONON [Concomitant]
     Indication: ASTHMA
  9. CLEANAL [Concomitant]
     Indication: BRONCHIECTASIS

REACTIONS (1)
  - SUDDEN DEATH [None]
